FAERS Safety Report 7355733-4 (Version None)
Quarter: 2011Q1

REPORT INFORMATION
  Report Type: 
  Country: None (occurrence: None)
  Receive Date: 20110316
  Receipt Date: 20110309
  Transmission Date: 20110831
  Serious: Yes (Congenital Anomaly)
  Sender: FDA-Public Use
  Company Number: FR-GILEAD-2010-0031727

PATIENT
  Sex: Female

DRUGS (6)
  1. RIVOTRIL [Suspect]
     Indication: EPILEPSY
     Route: 064
     Dates: start: 20100103, end: 20100103
  2. VALPROIC ACID [Concomitant]
  3. DEPAKENE [Suspect]
     Indication: EPILEPSY
     Route: 064
  4. TRUVADA [Suspect]
     Indication: HIV INFECTION
     Route: 064
  5. NORVIR [Suspect]
     Indication: HIV INFECTION
  6. PREZISTA [Suspect]
     Indication: HIV INFECTION
     Route: 064

REACTIONS (2)
  - INTRAVENTRICULAR HAEMORRHAGE [None]
  - VENTRICULAR SEPTAL DEFECT [None]
